FAERS Safety Report 7341886-0 (Version None)
Quarter: 2011Q1

REPORT INFORMATION
  Report Type: 
  Country: None (occurrence: None)
  Receive Date: 20110309
  Receipt Date: 20110225
  Transmission Date: 20110831
  Serious: Yes (Hospitalization)
  Sender: FDA-Public Use
  Company Number: US-ELI_LILLY_AND_COMPANY-US201102007609

PATIENT
  Sex: Male
  Weight: 79 kg

DRUGS (6)
  1. RISPERDONE [Concomitant]
     Dosage: UNK, UNKNOWN
  2. DEPAKOTE [Concomitant]
     Dosage: UNK, UNKNOWN
  3. MYCOPHENOLATE MOFETIL [Concomitant]
     Indication: RENAL TRANSPLANT
     Dosage: 2 G, 2/D
     Route: 048
     Dates: start: 20110202
  4. CORTICOSTEROIDS [Concomitant]
     Dosage: UNK, UNKNOWN
  5. ZYPREXA [Suspect]
     Dosage: UNK, UNKNOWN
  6. PROGRAF [Concomitant]
     Dosage: UNK, UNKNOWN

REACTIONS (13)
  - CONFUSIONAL STATE [None]
  - MOTOR DYSFUNCTION [None]
  - BLOOD ELECTROLYTES ABNORMAL [None]
  - DISORIENTATION [None]
  - DYSARTHRIA [None]
  - BLOOD UREA INCREASED [None]
  - TREMOR [None]
  - NEUTROPHIL COUNT ABNORMAL [None]
  - SLUGGISHNESS [None]
  - IRRITABILITY [None]
  - HYDROCEPHALUS [None]
  - BLOOD CREATININE INCREASED [None]
  - WHITE BLOOD CELL COUNT INCREASED [None]
